FAERS Safety Report 20477031 (Version 3)
Quarter: 2025Q2

REPORT INFORMATION
  Report Type: Report from Study
  Country: US (occurrence: US)
  Receive Date: 20220215
  Receipt Date: 20250513
  Transmission Date: 20250716
  Serious: Yes (Other)
  Sender: SANOFI AVENTIS
  Company Number: US-SA-2022SA044109

PATIENT
  Age: 49 Year
  Sex: Female
  Weight: 79.37 kg

DRUGS (2)
  1. DUPILUMAB [Suspect]
     Active Substance: DUPILUMAB
     Indication: Asthma
     Route: 058
     Dates: start: 20220204, end: 20220204
  2. DUPILUMAB [Suspect]
     Active Substance: DUPILUMAB
     Indication: Nasal polyps
     Dosage: 200 MG, QOW
     Route: 058
     Dates: start: 202202

REACTIONS (3)
  - Atypical pneumonia [Unknown]
  - Product use in unapproved indication [Unknown]
  - Asthma [Unknown]

NARRATIVE: CASE EVENT DATE: 20220204
